FAERS Safety Report 20645295 (Version 1)
Quarter: 2022Q1

REPORT INFORMATION
  Report Type: Spontaneous
  Country: GB (occurrence: GB)
  Receive Date: 20220328
  Receipt Date: 20220328
  Transmission Date: 20220423
  Serious: Yes (Other)
  Sender: FDA-Public Use
  Company Number: GB-SANOFI-01001908

PATIENT
  Age: 83 Year
  Sex: Female

DRUGS (2)
  1. INSULIN HUMAN [Suspect]
     Active Substance: INSULIN HUMAN
     Indication: Product used for unknown indication
     Dosage: UNK, UNKNOWN
     Route: 065
  2. MORPHINE [Concomitant]
     Active Substance: MORPHINE
     Dosage: UNK, UNKNOWN

REACTIONS (10)
  - Pneumonia [Unknown]
  - Abdominal pain [Unknown]
  - Performance fear [Unknown]
  - Hypoacusis [Unknown]
  - Pain in extremity [Unknown]
  - Eye disorder [Unknown]
  - Headache [Unknown]
  - Asthenia [Unknown]
  - Hypoglycaemia [Unknown]
  - Limb injury [Unknown]
